FAERS Safety Report 8207842-5 (Version None)
Quarter: 2012Q1

REPORT INFORMATION
  Report Type: 
  Country: None (occurrence: None)
  Receive Date: 20120313
  Receipt Date: 20120313
  Transmission Date: 20120608
  Serious: Yes (Hospitalization)
  Sender: FDA-Public Use
  Company Number: None

PATIENT
  Age: 63 Year
  Sex: Male
  Weight: 100 kg

DRUGS (4)
  1. PLEASE SEE ATTACHED ^10/C10^ [Concomitant]
  2. GEMCITABINE [Suspect]
     Indication: PANCREATIC CARCINOMA
     Dosage: 1500MG/M2 IVX2
     Route: 042
     Dates: start: 20120104
  3. GEMCITABINE [Suspect]
     Indication: PANCREATIC CARCINOMA
     Dosage: 1500MG/M2 IVX2
     Route: 042
     Dates: start: 20120118
  4. HYDROXYCHLOROQUINE SULFATE [Suspect]
     Dosage: 600MG PO BID
     Route: 048
     Dates: start: 20120102, end: 20120201

REACTIONS (1)
  - GASTRIC PERFORATION [None]
